FAERS Safety Report 5615131-8 (Version None)
Quarter: 2008Q1

REPORT INFORMATION
  Report Type: 
  Country: None (occurrence: None)
  Receive Date: 20080206
  Receipt Date: 20070723
  Transmission Date: 20080703
  Serious: No
  Sender: FDA-Public Use
  Company Number: A0659229A

PATIENT
  Age: 55 Year
  Sex: Male

DRUGS (1)
  1. ARIXTRA [Suspect]
     Dosage: .5ML PER DAY
     Route: 058
     Dates: start: 20070607, end: 20070609

REACTIONS (4)
  - ANOREXIA [None]
  - MALAISE [None]
  - NAUSEA [None]
  - PYREXIA [None]
